FAERS Safety Report 18228425 (Version 1)
Quarter: 2020Q3

REPORT INFORMATION
  Report Type: Spontaneous
  Country: US (occurrence: US)
  Receive Date: 20200903
  Receipt Date: 20200903
  Transmission Date: 20201103
  Serious: Yes (Hospitalization)
  Sender: FDA-Public Use
  Company Number: US-GW PHARMA-202008USGW02945

PATIENT

DRUGS (3)
  1. EPIDIOLEX [Suspect]
     Active Substance: CANNABIDIOL
     Dosage: ANOTHER BATCH NUMBER
     Route: 048
  2. EPIDIOLEX [Suspect]
     Active Substance: CANNABIDIOL
     Indication: EPILEPSY
     Dosage: 750 MILLIGRAM, QD (3.5ML QAM + 4ML QHS)
     Route: 048
     Dates: start: 20190211
  3. EPIDIOLEX [Suspect]
     Active Substance: CANNABIDIOL
     Dosage: ANOTHER BATCH NUMBER
     Route: 048

REACTIONS (3)
  - Seizure [Recovered/Resolved]
  - Product use in unapproved indication [Not Recovered/Not Resolved]
  - Seizure [Recovered/Resolved]

NARRATIVE: CASE EVENT DATE: 20190211
